FAERS Safety Report 25718152 (Version 2)
Quarter: 2025Q4

REPORT INFORMATION
  Report Type: Spontaneous
  Country: CA (occurrence: CA)
  Receive Date: 20250823
  Receipt Date: 20251114
  Transmission Date: 20260118
  Serious: Yes (Other)
  Sender: CELLTRION
  Company Number: CA-CELLTRION INC.-2025CA021730

PATIENT

DRUGS (4)
  1. INFLIXIMAB [Suspect]
     Active Substance: INFLIXIMAB
     Indication: Crohn^s disease
     Dosage: MAINTENANCE AT 1300 MG (10 MG/KG) EVERY 6 WEEKS
     Route: 042
     Dates: start: 20250630
  2. INFLIXIMAB [Suspect]
     Active Substance: INFLIXIMAB
     Dosage: MAINTENANCE AT 10 MG/KG EVERY 6 WEEKS
     Route: 042
     Dates: start: 20250630
  3. INFLIXIMAB [Suspect]
     Active Substance: INFLIXIMAB
     Dosage: MAINTENANCE AT 10 MG/KG EVERY 6 WEEKS
     Route: 042
     Dates: start: 20250926
  4. INFLIXIMAB [Suspect]
     Active Substance: INFLIXIMAB
     Dosage: MAINTENANCE AT 10 MG/KG EVERY 6 WEEKS
     Route: 042
     Dates: start: 20251105

REACTIONS (5)
  - Uveitis [Unknown]
  - Harvey-Bradshaw index increased [Unknown]
  - Off label use [Unknown]
  - Overdose [Unknown]
  - Inappropriate schedule of product administration [Unknown]
